FAERS Safety Report 25664819 (Version 1)
Quarter: 2025Q3

REPORT INFORMATION
  Report Type: Spontaneous
  Country: US (occurrence: None)
  Receive Date: 20250808
  Receipt Date: 20250808
  Transmission Date: 20251020
  Serious: Yes (Hospitalization)
  Sender: FDA-CTU
  Company Number: None

PATIENT
  Age: 78 Year
  Sex: Female
  Weight: 73.3 kg

DRUGS (2)
  1. FERRIC DERISOMALTOSE [Suspect]
     Active Substance: FERRIC DERISOMALTOSE
     Indication: Iron deficiency
     Route: 042
     Dates: start: 20250723, end: 20250723
  2. sodium chloride 0.9 % infusion 500 mL IV Once [Concomitant]
     Dates: start: 20250723, end: 20250723

REACTIONS (6)
  - Chest pain [None]
  - Dyspnoea [None]
  - Dizziness [None]
  - Palpitations [None]
  - Hypertension [None]
  - Anaphylactic reaction [None]

NARRATIVE: CASE EVENT DATE: 20250723
